FAERS Safety Report 7962109-5 (Version None)
Quarter: 2011Q4

REPORT INFORMATION
  Report Type: 
  Country: None (occurrence: None)
  Receive Date: 20111207
  Receipt Date: 20111201
  Transmission Date: 20120403
  Serious: Yes (Other)
  Sender: FDA-Public Use
  Company Number: US-JNJFOC-20111201728

PATIENT
  Sex: Female
  Weight: 117.94 kg

DRUGS (5)
  1. NEOSPORIN [Suspect]
     Route: 061
     Dates: start: 20030101, end: 20030101
  2. NEOSPORIN [Suspect]
     Indication: LIMB OPERATION
     Dosage: A FEW YEARS AGO
     Route: 061
  3. NEOSPORIN [Suspect]
     Indication: SKIN INFECTION
     Dosage: A FEW YEARS AGO
     Route: 061
  4. NAPROXEN (ALEVE) [Concomitant]
     Indication: HEADACHE
     Route: 065
  5. NEOSPORIN [Suspect]
     Route: 061
     Dates: start: 20030101, end: 20030101

REACTIONS (4)
  - DRUG HYPERSENSITIVITY [None]
  - APPLICATION SITE PAIN [None]
  - DERMATITIS ALLERGIC [None]
  - INFECTION [None]
